FAERS Safety Report 6071286-5 (Version None)
Quarter: 2009Q1

REPORT INFORMATION
  Report Type: 
  Country: None (occurrence: None)
  Receive Date: 20090205
  Receipt Date: 20090120
  Transmission Date: 20090719
  Serious: Yes (Hospitalization)
  Sender: FDA-Public Use
  Company Number: 8041570

PATIENT
  Sex: Male

DRUGS (2)
  1. KEPPRA [Suspect]
     Indication: PROPHYLAXIS
     Dosage: 500 MG 2/D PO
     Route: 048
     Dates: start: 20081001
  2. VANCOMYCIN HCL [Suspect]

REACTIONS (2)
  - HEPATIC ENZYME INCREASED [None]
  - OSTEOMYELITIS [None]
